FAERS Safety Report 7998451-1 (Version None)
Quarter: 2011Q4

REPORT INFORMATION
  Report Type: 
  Country: None (occurrence: None)
  Receive Date: 20111207
  Receipt Date: 20111122
  Transmission Date: 20120403
  Serious: Yes (Hospitalization, Other)
  Sender: FDA-Public Use
  Company Number: 2011PROUSA00762

PATIENT
  Age: 63 Year
  Sex: Male
  Weight: 102.9665 kg

DRUGS (13)
  1. VITAMIN B-12 [Concomitant]
  2. CHOLECALCIFEROL (COLECALCIFEROL) [Concomitant]
  3. FERROUS SULFATE TAB [Concomitant]
  4. NEURONTIN [Concomitant]
  5. ZOFRAN /00955301/ (ONDANSETRON) [Concomitant]
  6. DEXAMETHASONE [Suspect]
     Indication: MYELOPATHY
  7. ZYRTEC [Concomitant]
  8. ASCORBIC ACID [Concomitant]
  9. ZOMETA [Suspect]
     Indication: PROSTATE CANCER METASTATIC
  10. MULTIVITAMIN /00097801/ (ASCORBIC ACID, CALCIUM PANTOTHENATE, ERGOCALC [Concomitant]
  11. CITRACAL + D /01438101/ (CALCIUM CITRATE, ERGOCALCIFEROL) [Concomitant]
  12. PROVENGE [Suspect]
     Indication: PROSTATE CANCER METASTATIC
     Dosage: 250 ML, SINGLE, INTRAVENOUS
     Route: 042
     Dates: start: 20111024, end: 20111024
  13. MIRALAX /00754501/ (MACROGOL) [Concomitant]

REACTIONS (8)
  - PLEURAL EFFUSION [None]
  - MYELOPATHY [None]
  - CARDIOMEGALY [None]
  - HYPERGLYCAEMIA [None]
  - ATELECTASIS [None]
  - EXTRASYSTOLES [None]
  - DISEASE PROGRESSION [None]
  - METASTASES TO BONE [None]
